FAERS Safety Report 4856765-8 (Version None)
Quarter: 2005Q4

REPORT INFORMATION
  Report Type: 
  Country: None (occurrence: None)
  Receive Date: 20051219
  Receipt Date: 20050120
  Transmission Date: 20060501
  Serious: No
  Sender: FDA-Public Use
  Company Number: US-GLAXOSMITHKLINE-A0541518A

PATIENT
  Age: 66 Year
  Sex: Female
  Weight: 72 kg

DRUGS (3)
  1. NICODERM CQ [Suspect]
     Dates: start: 20050120, end: 20050120
  2. DOXYCYCLINE [Concomitant]
     Indication: HYPERTENSION
     Route: 048
  3. LISINOPRIL AND HYDROCHLOROTHIAZIDE [Concomitant]
     Indication: HYPERTENSION

REACTIONS (3)
  - APPLICATION SITE PRURITUS [None]
  - BLOOD PRESSURE INCREASED [None]
  - HEADACHE [None]
